FAERS Safety Report 6172587-2 (Version None)
Quarter: 2009Q2

REPORT INFORMATION
  Report Type: 
  Country: None (occurrence: None)
  Receive Date: 20090428
  Receipt Date: 20090422
  Transmission Date: 20091009
  Serious: Yes (Hospitalization)
  Sender: FDA-Public Use
  Company Number: 2009001147

PATIENT
  Age: 69 Year
  Sex: Male

DRUGS (6)
  1. ERLOTINIB (ERLOTINIB) (TABLET) (ERLOTINIB) [Suspect]
     Indication: OESOPHAGEAL CARCINOMA
     Dosage: (100 MG, QD), ORAL
     Route: 048
     Dates: start: 20080630, end: 20080714
  2. BEVACIZUMAB (INJECTION FOR INFUSION) [Suspect]
     Indication: OESOPHAGEAL CARCINOMA
     Dosage: (15 MG/KG, DAYS 1 + 22), INTRAVENOUS
     Route: 042
     Dates: start: 20080630, end: 20080630
  3. CARBOPLATIN [Suspect]
     Indication: OESOPHAGEAL CARCINOMA
     Dosage: (5 AUC, DAYS 1 + 22), INTRAVENOUS
     Route: 042
     Dates: start: 20080630
  4. FLUOROURACIL [Suspect]
     Indication: OESOPHAGEAL CARCINOMA
     Dosage: (225 MG/M2), INTRAVENOUS
     Route: 042
     Dates: start: 20080630, end: 20080714
  5. PACLITAXEL [Suspect]
     Indication: OESOPHAGEAL CARCINOMA
     Dosage: (200 MG/M2, DAYS 1 + 22)
     Dates: start: 20080630
  6. DIOVAN (INJECTION FOR INFUSION) [Concomitant]

REACTIONS (11)
  - BLOOD ALBUMIN DECREASED [None]
  - BLOOD PRESSURE INCREASED [None]
  - BLOOD SODIUM DECREASED [None]
  - BLOOD UREA INCREASED [None]
  - CATHETER RELATED COMPLICATION [None]
  - DEHYDRATION [None]
  - GASTROINTESTINAL ANASTOMOTIC LEAK [None]
  - ILEUS [None]
  - MALNUTRITION [None]
  - OESOPHAGITIS [None]
  - SMALL INTESTINAL OBSTRUCTION [None]
